FAERS Safety Report 9206588 (Version 1)
Quarter: 2013Q2

REPORT INFORMATION
  Report Type: Report from Study
  Country: JP (occurrence: JP)
  Receive Date: 20130403
  Receipt Date: 20130403
  Transmission Date: 20140414
  Serious: Yes (Death, Hospitalization)
  Sender: FDA-Public Use
  Company Number: JP-JNJFOC-20130308040

PATIENT
  Sex: Female
  Weight: 45 kg

DRUGS (1)
  1. ONE DURO [Suspect]
     Indication: CANCER PAIN
     Route: 062
     Dates: start: 20121210, end: 20130207

REACTIONS (2)
  - Gallbladder cancer [Fatal]
  - Drug intolerance [Unknown]
